FAERS Safety Report 10583551 (Version 1)
Quarter: 2014Q4

REPORT INFORMATION
  Report Type: Spontaneous
  Country: US (occurrence: None)
  Receive Date: 20141112
  Receipt Date: 20141112
  Transmission Date: 20150529
  Serious: Yes (Hospitalization)
  Sender: FDA-Public Use
  Company Number: 201411019

PATIENT
  Age: 62 Year
  Sex: Male

DRUGS (2)
  1. TESTIM [Suspect]
     Active Substance: TESTOSTERONE
     Indication: BLOOD TESTOSTERONE DECREASED
     Route: 062
     Dates: start: 201210, end: 201211
  2. ANDROGEL [Suspect]
     Active Substance: TESTOSTERONE
     Indication: BLOOD TESTOSTERONE DECREASED
     Dates: start: 201203, end: 201210

REACTIONS (11)
  - Anhedonia [None]
  - Frustration [None]
  - Injury [None]
  - Economic problem [None]
  - Cerebrovascular accident [None]
  - Fear [None]
  - Impaired work ability [None]
  - Anxiety [None]
  - Confusional state [None]
  - Headache [None]
  - Pain [None]

NARRATIVE: CASE EVENT DATE: 20121105
